FAERS Safety Report 8383503 (Version 2)
Quarter: 2015Q2

REPORT INFORMATION
  Report Type: Report from Study
  Country: US (occurrence: US)
  Receive Date: 20120130
  Receipt Date: 20150622
  Transmission Date: 20150821
  Serious: Yes (Death)
  Sender: FDA-Public Use
  Company Number: US-ROCHE-1034026

PATIENT
  Sex: Male

DRUGS (12)
  1. TAGAMET [Concomitant]
     Active Substance: CIMETIDINE
     Route: 065
  2. BENADRYL [Concomitant]
     Active Substance: DIPHENHYDRAMINE HYDROCHLORIDE
     Route: 065
  3. AVASTIN [Suspect]
     Active Substance: BEVACIZUMAB
     Indication: MALIGNANT URINARY TRACT NEOPLASM
     Route: 042
  4. AVASTIN [Suspect]
     Active Substance: BEVACIZUMAB
     Route: 042
  5. CIMETIDINE [Concomitant]
     Active Substance: CIMETIDINE
     Route: 065
  6. GRANISETRON [Concomitant]
     Active Substance: GRANISETRON
     Route: 065
  7. DECADRON [Concomitant]
     Active Substance: DEXAMETHASONE
     Route: 065
  8. ATIVAN [Concomitant]
     Active Substance: LORAZEPAM
     Route: 065
  9. METHYLPREDNISOLONE. [Concomitant]
     Active Substance: METHYLPREDNISOLONE
     Route: 065
  10. DEPO-MEDROL [Concomitant]
     Active Substance: METHYLPREDNISOLONE ACETATE
     Route: 065
  11. TARCEVA [Suspect]
     Active Substance: ERLOTINIB HYDROCHLORIDE
     Indication: MALIGNANT URINARY TRACT NEOPLASM
     Route: 048
  12. MORPHINE [Concomitant]
     Active Substance: MORPHINE
     Route: 065

REACTIONS (6)
  - Off label use [Unknown]
  - Nausea [Unknown]
  - Vomiting [Unknown]
  - Death [Fatal]
  - Fatigue [Unknown]
  - Flank pain [Unknown]
